FAERS Safety Report 24398914 (Version 1)
Quarter: 2024Q4

REPORT INFORMATION
  Report Type: Spontaneous
  Country: US (occurrence: US)
  Receive Date: 20241004
  Receipt Date: 20241004
  Transmission Date: 20250114
  Serious: No
  Sender: GENMAB
  Company Number: US-GENMAB-2024-02526

PATIENT

DRUGS (4)
  1. EPCORITAMAB [Suspect]
     Active Substance: EPCORITAMAB
     Dosage: CYCLE 1 DOSE 1
     Route: 065
  2. EPCORITAMAB [Suspect]
     Active Substance: EPCORITAMAB
     Dosage: CYCLE 1 DOSE 2
     Route: 065
  3. EPCORITAMAB [Suspect]
     Active Substance: EPCORITAMAB
     Dosage: CYCLE 1 DOSE 3
     Route: 065
  4. EPCORITAMAB [Suspect]
     Active Substance: EPCORITAMAB
     Dosage: CYCLE 1 DOSE 4 (C1D22)
     Route: 065
     Dates: start: 20240711

REACTIONS (1)
  - Bone pain [Unknown]
